FAERS Safety Report 14471694 (Version 4)
Quarter: 2018Q4

REPORT INFORMATION
  Report Type: Spontaneous
  Country: IT (occurrence: IT)
  Receive Date: 20180131
  Receipt Date: 20181130
  Transmission Date: 20190204
  Serious: Yes (Hospitalization, Disabling, Other)
  Sender: FDA-Public Use
  Company Number: IT-SA-2018SA019597

PATIENT
  Age: 67 Year
  Sex: Female

DRUGS (13)
  1. MIRTAZAPINE. [Concomitant]
     Active Substance: MIRTAZAPINE
     Dosage: 30 MG,QD
     Route: 048
  2. TAVOR [SIMVASTATIN] [Concomitant]
     Active Substance: SIMVASTATIN
     Dosage: 2.5 MG,QD
     Route: 048
  3. ALENDRONATE [Concomitant]
     Active Substance: ALENDRONATE SODIUM
     Dosage: UNK UNK,UNK
     Route: 065
  4. LIORESAL [Concomitant]
     Active Substance: BACLOFEN
     Dosage: 10 MG,UNK
     Route: 048
  5. ASA [Concomitant]
     Active Substance: ASPIRIN
     Dosage: 100 MG,QD
     Route: 048
  6. TORVAST [Concomitant]
     Active Substance: ATORVASTATIN
     Dosage: 20 MG,QD
     Route: 048
  7. AUBAGIO [Suspect]
     Active Substance: TERIFLUNOMIDE
     Indication: MULTIPLE SCLEROSIS
     Dosage: UNK UNK,UNK
     Route: 048
     Dates: start: 20160929
  8. PANTOPRAZOLE [Concomitant]
     Active Substance: PANTOPRAZOLE
     Dosage: 40 MG,UNK
     Route: 048
  9. WELLBUTRIN [Concomitant]
     Active Substance: BUPROPION HYDROCHLORIDE
     Dosage: 150 MG,BID
     Route: 048
  10. ACETYLSALICYLIC ACID [Concomitant]
     Active Substance: ASPIRIN
     Dosage: UNK UNK,UNK
     Route: 065
  11. SEQUACOR [Concomitant]
     Active Substance: BISOPROLOL
     Dosage: 1.5 MG,UNK
     Route: 048
  12. CYMBALTA [Concomitant]
     Active Substance: DULOXETINE HYDROCHLORIDE
     Dosage: 60 MG,UNK
     Route: 048
  13. RIVOTRIL [Concomitant]
     Active Substance: CLONAZEPAM
     Dosage: 6 DROPS AT 08 AM AND 2 DROPS AT 08 PM
     Route: 048

REACTIONS (11)
  - Type 2 diabetes mellitus [Unknown]
  - Cerebellar haemorrhage [Not Recovered/Not Resolved]
  - Motor dysfunction [Unknown]
  - Loss of personal independence in daily activities [Unknown]
  - Trigeminal nerve disorder [Unknown]
  - Hemiparesis [Unknown]
  - Respiratory tract infection [Unknown]
  - Fall [Unknown]
  - Cerebrovascular disorder [Unknown]
  - Paraparesis [Unknown]
  - Dysphagia [Recovering/Resolving]

NARRATIVE: CASE EVENT DATE: 2017
